FAERS Safety Report 8071463-8 (Version None)
Quarter: 2012Q1

REPORT INFORMATION
  Report Type: 
  Country: None (occurrence: None)
  Receive Date: 20120125
  Receipt Date: 20120123
  Transmission Date: 20120608
  Serious: No
  Sender: FDA-Public Use
  Company Number: US-PFIZER INC-2010124868

PATIENT
  Sex: Male

DRUGS (5)
  1. ACCUPRIL [Concomitant]
     Dosage: UNK
  2. ADDERALL 5 [Suspect]
     Dosage: 10 MG, 1X/DAY
     Route: 048
     Dates: start: 20100101
  3. PRISTIQ [Suspect]
     Dosage: 100 MG, 1X/DAY
     Route: 048
  4. ADDERALL 5 [Suspect]
     Dosage: 20 MG, 1X/DAY
     Route: 048
  5. PRISTIQ [Suspect]
     Indication: DEPRESSION
     Dosage: 50 MG, 1X/DAY
     Route: 048
     Dates: start: 20100101

REACTIONS (6)
  - NERVOUSNESS [None]
  - DIZZINESS [None]
  - BLOOD PRESSURE INCREASED [None]
  - BLOOD GLUCOSE ABNORMAL [None]
  - DEPRESSION [None]
  - DRUG EFFECT DECREASED [None]
